FAERS Safety Report 9774288 (Version 1)
Quarter: 2013Q4

REPORT INFORMATION
  Report Type: Spontaneous
  Country: FR (occurrence: FR)
  Receive Date: 20131220
  Receipt Date: 20131220
  Transmission Date: 20140711
  Serious: Yes (Hospitalization)
  Sender: FDA-Public Use
  Company Number: FR-ROCHE-1322879

PATIENT
  Age: 41 Year
  Sex: Female

DRUGS (5)
  1. PEGASYS [Suspect]
     Indication: CHRONIC HEPATITIS C
     Route: 058
     Dates: start: 20130330, end: 20131001
  2. COPEGUS [Suspect]
     Indication: CHRONIC HEPATITIS C
     Route: 048
     Dates: start: 20130330, end: 20131001
  3. VICTRELIS [Suspect]
     Indication: CHRONIC HEPATITIS C
     Route: 048
     Dates: start: 20130330, end: 20131001
  4. CORTANCYL [Concomitant]
     Route: 065
  5. NPLATE [Concomitant]
     Indication: THROMBOCYTOPENIA
     Route: 065
     Dates: start: 20130101

REACTIONS (1)
  - Erythema nodosum [Recovered/Resolved]
